FAERS Safety Report 10660046 (Version 4)
Quarter: 2015Q1

REPORT INFORMATION
  Report Type: Spontaneous
  Country: JP (occurrence: JP)
  Receive Date: 20141217
  Receipt Date: 20150303
  Transmission Date: 20150720
  Serious: Yes (Hospitalization, Other)
  Sender: FDA-Public Use
  Company Number: JP-GLAXOSMITHKLINE-JP2014JPN035632

PATIENT
  Age: 56 Year
  Sex: Male
  Weight: 56 kg

DRUGS (5)
  1. LAMICTAL [Suspect]
     Active Substance: LAMOTRIGINE
     Indication: EPILEPSY
     Dosage: 25 MG, QD
     Route: 048
     Dates: start: 20141011, end: 20141102
  2. VALERIN [Concomitant]
     Active Substance: VALPROATE SODIUM
     Dosage: 1200 MG, 1D
     Route: 048
     Dates: start: 20141024
  3. VALERIN [Concomitant]
     Active Substance: VALPROATE SODIUM
     Dosage: 600 MG, 1D
     Dates: start: 20141017, end: 20141019
  4. LAMICTAL [Suspect]
     Active Substance: LAMOTRIGINE
     Dosage: 50 MG, 1D
     Route: 048
     Dates: start: 20141103, end: 20141107
  5. VALERIN [Concomitant]
     Active Substance: VALPROATE SODIUM
     Dosage: 900 MG, 1D
     Dates: start: 20141020, end: 20141023

REACTIONS (4)
  - Renal impairment [Recovering/Resolving]
  - Hepatic function abnormal [Recovering/Resolving]
  - Drug eruption [Recovering/Resolving]
  - Psychiatric symptom [Unknown]

NARRATIVE: CASE EVENT DATE: 20141107
